FAERS Safety Report 22390223 (Version 2)
Quarter: 2023Q2

REPORT INFORMATION
  Report Type: Report from Study
  Country: CN (occurrence: CN)
  Receive Date: 20230531
  Receipt Date: 20230621
  Transmission Date: 20230721
  Serious: Yes (Hospitalization)
  Sender: FDA-Public Use
  Company Number: CN-PFIZER INC-PV202300094381

PATIENT
  Age: 48 Year
  Sex: Female

DRUGS (38)
  1. PACLITAXEL [Suspect]
     Active Substance: PACLITAXEL
     Indication: Triple negative breast cancer
     Dosage: 134.4 MG, WEEKLY
     Route: 042
     Dates: start: 20221110, end: 20221110
  2. PACLITAXEL [Suspect]
     Active Substance: PACLITAXEL
     Dosage: 134.4 MG, WEEKLY
     Route: 042
     Dates: start: 20221117, end: 20221117
  3. PACLITAXEL [Suspect]
     Active Substance: PACLITAXEL
     Dosage: 134.4 MG, WEEKLY
     Route: 042
     Dates: start: 20221129, end: 20221129
  4. PACLITAXEL [Suspect]
     Active Substance: PACLITAXEL
     Dosage: 134.4 MG, WEEKLY
     Route: 042
     Dates: start: 20230201, end: 20230201
  5. PACLITAXEL [Suspect]
     Active Substance: PACLITAXEL
     Dosage: 134.4 MG, WEEKLY
     Route: 042
     Dates: start: 20230208, end: 20230208
  6. PACLITAXEL [Suspect]
     Active Substance: PACLITAXEL
     Dosage: 134.4 MG, WEEKLY
     Route: 042
     Dates: start: 20230215, end: 20230215
  7. PACLITAXEL [Suspect]
     Active Substance: PACLITAXEL
     Dosage: 134.4 MG, WEEKLY
     Route: 042
     Dates: start: 20230301, end: 20230301
  8. PACLITAXEL [Suspect]
     Active Substance: PACLITAXEL
     Dosage: 134.4 MG, WEEKLY
     Route: 042
     Dates: start: 20230308, end: 20230308
  9. PACLITAXEL [Suspect]
     Active Substance: PACLITAXEL
     Dosage: 134.4 MG, WEEKLY
     Route: 042
     Dates: start: 20230316, end: 20230316
  10. PACLITAXEL [Suspect]
     Active Substance: PACLITAXEL
     Dosage: 134.4 MG, WEEKLY
     Route: 042
     Dates: start: 20230330, end: 20230330
  11. PACLITAXEL [Suspect]
     Active Substance: PACLITAXEL
     Dosage: 134.4 MG, WEEKLY
     Route: 042
     Dates: start: 20230406, end: 20230406
  12. PACLITAXEL [Suspect]
     Active Substance: PACLITAXEL
     Dosage: 134.4 MG, WEEKLY
     Route: 042
     Dates: start: 20230413, end: 20230413
  13. INVESTIGATIONAL PRODUCT [Suspect]
     Active Substance: INVESTIGATIONAL PRODUCT
     Indication: Triple negative breast cancer
     Dosage: 400 MG, 2X/DAY
     Route: 048
     Dates: start: 20221111, end: 20221114
  14. INVESTIGATIONAL PRODUCT [Suspect]
     Active Substance: INVESTIGATIONAL PRODUCT
     Dosage: 400 MG, 2X/DAY
     Route: 048
     Dates: start: 20221118, end: 20221121
  15. INVESTIGATIONAL PRODUCT [Suspect]
     Active Substance: INVESTIGATIONAL PRODUCT
     Dosage: 400 MG, 2X/DAY
     Route: 048
     Dates: start: 20230114, end: 20230117
  16. INVESTIGATIONAL PRODUCT [Suspect]
     Active Substance: INVESTIGATIONAL PRODUCT
     Dosage: 400 MG, 2X/DAY
     Route: 048
     Dates: start: 20230202, end: 20230205
  17. INVESTIGATIONAL PRODUCT [Suspect]
     Active Substance: INVESTIGATIONAL PRODUCT
     Dosage: 400 MG, 2X/DAY
     Route: 048
     Dates: start: 20230209, end: 20230212
  18. INVESTIGATIONAL PRODUCT [Suspect]
     Active Substance: INVESTIGATIONAL PRODUCT
     Dosage: 400 MG, 2X/DAY
     Route: 048
     Dates: start: 20221125, end: 20221128
  19. INVESTIGATIONAL PRODUCT [Suspect]
     Active Substance: INVESTIGATIONAL PRODUCT
     Dosage: 400 MG, 2X/DAY
     Route: 048
     Dates: start: 20221230, end: 20230103
  20. INVESTIGATIONAL PRODUCT [Suspect]
     Active Substance: INVESTIGATIONAL PRODUCT
     Dosage: 400 MG, 2X/DAY
     Route: 048
     Dates: start: 20230106, end: 20230109
  21. INVESTIGATIONAL PRODUCT [Suspect]
     Active Substance: INVESTIGATIONAL PRODUCT
     Dosage: 400 MG, 2X/DAY
     Route: 048
     Dates: start: 20230216, end: 20230219
  22. INVESTIGATIONAL PRODUCT [Suspect]
     Active Substance: INVESTIGATIONAL PRODUCT
     Dosage: 400 MG, 2X/DAY
     Route: 048
     Dates: start: 20230302, end: 20230305
  23. INVESTIGATIONAL PRODUCT [Suspect]
     Active Substance: INVESTIGATIONAL PRODUCT
     Dosage: 400 MG, 2X/DAY
     Route: 048
     Dates: start: 20230309, end: 20230313
  24. INVESTIGATIONAL PRODUCT [Suspect]
     Active Substance: INVESTIGATIONAL PRODUCT
     Dosage: 400 MG, 2X/DAY
     Route: 048
     Dates: start: 20230317, end: 20230320
  25. INVESTIGATIONAL PRODUCT [Suspect]
     Active Substance: INVESTIGATIONAL PRODUCT
     Dosage: 400 MG, 2X/DAY
     Route: 048
     Dates: start: 20230331, end: 20230403
  26. INVESTIGATIONAL PRODUCT [Suspect]
     Active Substance: INVESTIGATIONAL PRODUCT
     Dosage: 400 MG, 2X/DAY
     Route: 048
     Dates: start: 20230407, end: 20230410
  27. TROPISETRON HYDROCHLORIDE [Concomitant]
     Active Substance: TROPISETRON HYDROCHLORIDE
     Indication: Prophylaxis
     Dosage: 5 MG ONCE
     Route: 042
     Dates: start: 20230406, end: 20230406
  28. CIMETIDINE [Concomitant]
     Active Substance: CIMETIDINE
     Indication: Prophylaxis
     Dosage: 2 G ONCE
     Route: 042
     Dates: start: 20230406, end: 20230406
  29. DEXAMETHASONE SODIUM PHOSPHATE [Concomitant]
     Active Substance: DEXAMETHASONE SODIUM PHOSPHATE
     Indication: Allergy prophylaxis
     Dosage: 5 MG ONCE
     Route: 042
     Dates: start: 20230406, end: 20230406
  30. PROMETHAZINE HYDROCHLORIDE [Concomitant]
     Active Substance: PROMETHAZINE HYDROCHLORIDE
     Indication: Allergy prophylaxis
     Dosage: 50 MG ONCE
     Route: 030
     Dates: start: 20230406, end: 20230406
  31. RABEPRAZOLE SODIUM [Concomitant]
     Active Substance: RABEPRAZOLE SODIUM
     Indication: Prophylaxis
     Dosage: 20 MG ONCE
     Route: 042
     Dates: start: 20230406, end: 20230406
  32. DENOSUMAB [Concomitant]
     Active Substance: DENOSUMAB
     Indication: Metastases to bone
     Dosage: 120 MG, DAILY
     Route: 058
     Dates: start: 20221110, end: 20221110
  33. REDUCED GLUTATHIONE [Concomitant]
     Indication: Glutathione decreased
     Dosage: 9 G ONCE
     Route: 042
     Dates: start: 20230406, end: 20230406
  34. REDUCED GLUTATHIONE [Concomitant]
     Indication: Prophylaxis
  35. REDUCED GLUTATHIONE [Concomitant]
     Indication: Liver transplant rejection
  36. EMPAGLIFLOZIN [Concomitant]
     Active Substance: EMPAGLIFLOZIN
     Indication: Hyperglycaemia
     Dosage: 10 MG, DAILY
     Route: 048
     Dates: start: 20230106
  37. METFORMIN HYDROCHLORIDE\SITAGLIPTIN PHOSPHATE [Concomitant]
     Active Substance: METFORMIN HYDROCHLORIDE\SITAGLIPTIN PHOSPHATE
     Indication: Hyperglycaemia
     Dosage: 500 MG, 2X/DAY
     Route: 048
     Dates: start: 20230227
  38. FU KANG [TRANEXAMIC ACID] [Concomitant]
     Indication: Hyperglycaemia
     Dosage: 3 G, 3X/DAY
     Route: 048
     Dates: start: 20230301

REACTIONS (1)
  - Malnutrition [Not Recovered/Not Resolved]

NARRATIVE: CASE EVENT DATE: 20230505
